FAERS Safety Report 25374282 (Version 1)
Quarter: 2025Q2

REPORT INFORMATION
  Report Type: Spontaneous
  Country: SE (occurrence: SE)
  Receive Date: 20250529
  Receipt Date: 20250529
  Transmission Date: 20250716
  Serious: Yes (Life-Threatening)
  Sender: FRESENIUS KABI
  Company Number: None

PATIENT
  Age: 32 Year
  Sex: Female
  Weight: 118 kg

DRUGS (11)
  1. SODIUM CHLORIDE [Suspect]
     Active Substance: SODIUM CHLORIDE
     Indication: Product used for unknown indication
     Dates: start: 20250514, end: 20250518
  2. ROCURONIUM BROMIDE [Suspect]
     Active Substance: ROCURONIUM BROMIDE
     Indication: Sedative therapy
     Route: 042
     Dates: start: 20250514, end: 20250514
  3. Ringer^s Acetate [sodium chloride, potassium chloride, sodium acetate [Concomitant]
     Indication: Product used for unknown indication
     Route: 042
     Dates: start: 20250514, end: 20250514
  4. Propofol [propofol, propofol] [Concomitant]
     Indication: Product used for unknown indication
     Route: 042
     Dates: start: 20250514, end: 20250518
  5. noradrenaline [noradrenaline] [Concomitant]
     Indication: Product used for unknown indication
     Route: 042
     Dates: start: 20250514, end: 20250514
  6. Oxycodone [oxycodone, oxycodone hydrochloride] [Concomitant]
     Indication: Product used for unknown indication
     Route: 042
     Dates: start: 20250514, end: 20250514
  7. Paracetamol Baxter [paracetamol] [Concomitant]
     Indication: Product used for unknown indication
     Route: 042
     Dates: start: 20250514, end: 20250514
  8. LIDOCAINE [Concomitant]
     Active Substance: LIDOCAINE
     Indication: Product used for unknown indication
     Route: 066
     Dates: start: 20250514, end: 20250514
  9. FENTANYL [Concomitant]
     Active Substance: FENTANYL
     Indication: Product used for unknown indication
     Route: 042
     Dates: start: 20250514, end: 20250514
  10. KETAMINE [Concomitant]
     Active Substance: KETAMINE
     Indication: Product used for unknown indication
     Route: 042
     Dates: start: 20250514, end: 20250514
  11. Albumin [albumin, humant] [Concomitant]
     Indication: Product used for unknown indication
     Route: 042
     Dates: start: 20250514, end: 20250514

REACTIONS (1)
  - Bronchospasm [Recovered/Resolved]

NARRATIVE: CASE EVENT DATE: 20250514
